FAERS Safety Report 20319262 (Version 2)
Quarter: 2022Q3

REPORT INFORMATION
  Report Type: Spontaneous
  Country: US (occurrence: US)
  Receive Date: 20220110
  Receipt Date: 20220808
  Transmission Date: 20221027
  Serious: No
  Sender: FDA-Public Use
  Company Number: US-PFIZER INC-202101377034

PATIENT
  Age: 86 Year
  Sex: Female
  Weight: 85.1 kg

DRUGS (1)
  1. IBRANCE [Suspect]
     Active Substance: PALBOCICLIB
     Indication: Breast cancer female
     Dosage: 75 MG, CYCLIC (TAKE ONE TABLET FOR 21 DAYS AND THEN REST FOR 7 DAYS)
     Route: 048
     Dates: start: 20210922

REACTIONS (8)
  - Hypersensitivity [Unknown]
  - Blister [Unknown]
  - Rash macular [Unknown]
  - Thermal burn [Unknown]
  - Skin discolouration [Unknown]
  - Hypoaesthesia [Unknown]
  - Arthritis [Recovering/Resolving]
  - Pain [Recovering/Resolving]
